FAERS Safety Report 6503781-6 (Version None)
Quarter: 2009Q4

REPORT INFORMATION
  Report Type: 
  Country: None (occurrence: None)
  Receive Date: 20091216
  Receipt Date: 20091216
  Transmission Date: 20100525
  Serious: Yes (Death, Hospitalization)
  Sender: FDA-Public Use
  Company Number: None

PATIENT
  Sex: Male
  Weight: 102 kg

DRUGS (7)
  1. MEMANTINE HCL [Suspect]
     Dosage: 680 MG
  2. CARDURA [Concomitant]
  3. DECADRON [Concomitant]
  4. KEPPRA [Concomitant]
  5. LASIX [Concomitant]
  6. METOPROLOL TARTRATE [Concomitant]
  7. SPIRONOLACTONE [Concomitant]

REACTIONS (6)
  - BLOOD GLUCOSE INCREASED [None]
  - DEEP VEIN THROMBOSIS [None]
  - FALL [None]
  - HYPOTENSION [None]
  - PULMONARY EMBOLISM [None]
  - RESPIRATORY DISTRESS [None]
